FAERS Safety Report 11139423 (Version 3)
Quarter: 2015Q4

REPORT INFORMATION
  Report Type: Spontaneous
  Country: US (occurrence: US)
  Receive Date: 20150527
  Receipt Date: 20151022
  Transmission Date: 20160304
  Serious: Yes (Hospitalization, Other)
  Sender: FDA-Public Use
  Company Number: US-BAYER-2015-262667

PATIENT
  Age: 26 Year
  Sex: Female
  Weight: 81.63 kg

DRUGS (4)
  1. MIRENA [Suspect]
     Active Substance: LEVONORGESTREL
     Indication: CONTRACEPTION
     Dosage: 20 MCG/24HR, CONT
     Route: 015
     Dates: start: 20050808, end: 20110303
  2. ADDERALL [Concomitant]
     Active Substance: AMPHETAMINE ASPARTATE\AMPHETAMINE SULFATE\DEXTROAMPHETAMINE SACCHARATE\DEXTROAMPHETAMINE SULFATE
     Indication: ATTENTION DEFICIT/HYPERACTIVITY DISORDER
     Dosage: UNK
     Dates: start: 2009
  3. OXYCODONE [Concomitant]
     Active Substance: OXYCODONE
     Indication: PAIN
     Dosage: UNK
     Dates: start: 2005
  4. XANAX [Concomitant]
     Active Substance: ALPRAZOLAM
     Indication: ANXIETY
     Dosage: UNK
     Dates: start: 2005

REACTIONS (17)
  - Pregnancy with contraceptive device [None]
  - Drug ineffective [None]
  - Pain [None]
  - Infertility female [None]
  - Device issue [None]
  - Uterine injury [None]
  - Depression [None]
  - Abortion spontaneous [None]
  - Emotional distress [None]
  - Fear [None]
  - Device use error [None]
  - Psychological trauma [None]
  - Anxiety [None]
  - Sleep disorder [None]
  - Mental disorder [None]
  - Uterine perforation [None]
  - Injury [None]

NARRATIVE: CASE EVENT DATE: 2006
